FAERS Safety Report 25568948 (Version 1)
Quarter: 2025Q3

REPORT INFORMATION
  Report Type: Spontaneous
  Country: KR (occurrence: KR)
  Receive Date: 20250716
  Receipt Date: 20250716
  Transmission Date: 20251021
  Serious: Yes (Hospitalization)
  Sender: EISAI
  Company Number: KR-LEN-SPO-25017

PATIENT
  Age: 38 Year
  Sex: Male

DRUGS (1)
  1. LENVIMA [Suspect]
     Active Substance: LENVATINIB
     Indication: Hepatocellular carcinoma
     Dates: start: 202501, end: 2025

REACTIONS (1)
  - Cholecystitis [Unknown]

NARRATIVE: CASE EVENT DATE: 20250101
